FAERS Safety Report 23078960 (Version 2)
Quarter: 2023Q4

REPORT INFORMATION
  Report Type: Spontaneous
  Country: US (occurrence: US)
  Receive Date: 20231018
  Receipt Date: 20231220
  Transmission Date: 20240110
  Serious: No
  Sender: FDA-Public Use
  Company Number: US-BRISTOL-MYERS SQUIBB COMPANY-2023-147860

PATIENT
  Age: 81 Year
  Sex: Female

DRUGS (1)
  1. CAMZYOS [Suspect]
     Active Substance: MAVACAMTEN
     Indication: Hypertrophic cardiomyopathy
     Dosage: OTHER STRENGTH: 2.5 MG
     Route: 048

REACTIONS (2)
  - Urinary tract infection [Unknown]
  - Wrong dosage form [Unknown]

NARRATIVE: CASE EVENT DATE: 20231015
